FAERS Safety Report 24820878 (Version 3)
Quarter: 2025Q2

REPORT INFORMATION
  Report Type: Spontaneous
  Country: US (occurrence: US)
  Receive Date: 20250108
  Receipt Date: 20250529
  Transmission Date: 20250716
  Serious: Yes (Death, Other)
  Sender: SANOFI AVENTIS
  Company Number: US-SA-2024SA376763

PATIENT
  Age: 71 Year
  Sex: Male

DRUGS (7)
  1. NEXVIAZYME [Suspect]
     Active Substance: AVALGLUCOSIDASE ALFA-NGPT
     Indication: Glycogen storage disease type II
     Dosage: 1500 MG, QOW
     Route: 042
     Dates: end: 20250102
  2. NEXVIAZYME [Suspect]
     Active Substance: AVALGLUCOSIDASE ALFA-NGPT
     Dosage: 1500 MG, QOW
     Route: 042
     Dates: start: 202503
  3. DIPHENHYDRAMINE [Concomitant]
     Active Substance: DIPHENHYDRAMINE
  4. EPINEPHRINE [Concomitant]
     Active Substance: EPINEPHRINE
  5. STERILE WATER [Concomitant]
     Active Substance: WATER
  6. BACTERIOSTATIC WATER [Concomitant]
     Active Substance: WATER
  7. METHYLPREDNISOLONE SODIUM SUCCINATE [Concomitant]
     Active Substance: METHYLPREDNISOLONE SODIUM SUCCINATE

REACTIONS (2)
  - Death [Fatal]
  - Cough [Unknown]
